FAERS Safety Report 6502626-8 (Version None)
Quarter: 2009Q4

REPORT INFORMATION
  Report Type: 
  Country: None (occurrence: None)
  Receive Date: 20091127
  Receipt Date: 20090819
  Transmission Date: 20100525
  Serious: No
  Sender: FDA-Public Use
  Company Number: 001571

PATIENT
  Sex: Female
  Weight: 56.8 kg

DRUGS (9)
  1. LACOSAMIDE [Suspect]
     Indication: EPILEPSY
     Dosage: (200 MG BID ORAL)
     Route: 048
     Dates: start: 20090714
  2. CARBATROL [Concomitant]
  3. CLONAZEPAM [Concomitant]
  4. INDERAL /00030001/ [Concomitant]
  5. FOLIC ACID [Concomitant]
  6. NATURAL ALTERNA. FLAXSEED OIL PLUS LECITHIN [Concomitant]
  7. CENOVIS MEGA CALCIUM PLUS D [Concomitant]
  8. CENTRUM SILVER /01292501/ [Concomitant]
  9. ASPIRIN [Concomitant]

REACTIONS (1)
  - DRY THROAT [None]
